FAERS Safety Report 11896900 (Version 1)
Quarter: 2016Q1

REPORT INFORMATION
  Report Type: Spontaneous
  Country: US (occurrence: US)
  Receive Date: 20160107
  Receipt Date: 20160107
  Transmission Date: 20160526
  Serious: No
  Sender: FDA-Public Use
  Company Number: US-ALLERGAN-1510589US

PATIENT
  Age: 52 Year
  Sex: Female

DRUGS (6)
  1. XANAX [Concomitant]
     Active Substance: ALPRAZOLAM
     Indication: SLEEP DISORDER
  2. BENZOYL PEROXIDE, CLINDAMYCIN PHOSPHATE [Suspect]
     Active Substance: BENZOYL PEROXIDE\CLINDAMYCIN PHOSPHATE
     Indication: ACNE
     Dosage: UNK
     Route: 061
     Dates: start: 201501
  3. ACZONE [Interacting]
     Active Substance: DAPSONE
     Indication: ACNE CYSTIC
     Dosage: UNK, BID
     Route: 061
     Dates: start: 201501
  4. ACZONE [Interacting]
     Active Substance: DAPSONE
     Dosage: UNK
     Route: 061
     Dates: start: 201504
  5. XANAX [Concomitant]
     Active Substance: ALPRAZOLAM
     Indication: ANXIETY
     Dosage: UNK
  6. ACETAMINOPHEN. [Suspect]
     Active Substance: ACETAMINOPHEN
     Indication: PRODUCT USED FOR UNKNOWN INDICATION

REACTIONS (3)
  - Chills [Not Recovered/Not Resolved]
  - Skin discolouration [Not Recovered/Not Resolved]
  - Drug interaction [Unknown]

NARRATIVE: CASE EVENT DATE: 201503
